FAERS Safety Report 16002610 (Version 1)
Quarter: 2019Q1

REPORT INFORMATION
  Report Type: Spontaneous
  Country: US (occurrence: US)
  Receive Date: 20190225
  Receipt Date: 20190225
  Transmission Date: 20190418
  Serious: No
  Sender: FDA-Public Use
  Company Number: US-SA-2019SA045308

PATIENT
  Sex: Female

DRUGS (2)
  1. AVAPRO [Suspect]
     Active Substance: IRBESARTAN
     Dosage: 2 DF, QD
     Dates: start: 2000
  2. AVAPRO [Suspect]
     Active Substance: IRBESARTAN
     Dosage: 1 DF, QD
     Dates: start: 199909

REACTIONS (1)
  - Chest pain [Unknown]
